FAERS Safety Report 6285098-0 (Version None)
Quarter: 2009Q3

REPORT INFORMATION
  Report Type: 
  Country: None (occurrence: None)
  Receive Date: 20090727
  Receipt Date: 20090720
  Transmission Date: 20100115
  Serious: Yes (Hospitalization, Other)
  Sender: FDA-Public Use
  Company Number: AR-BRISTOL-MYERS SQUIBB COMPANY-14709257

PATIENT
  Age: 58 Year
  Sex: Male

DRUGS (10)
  1. REYATAZ [Suspect]
     Indication: HIV INFECTION
     Route: 048
  2. RITONAVIR [Suspect]
     Indication: HIV INFECTION
     Dosage: OVERDOSE FROM OCT2008
  3. TENOFOVIR [Suspect]
     Indication: HIV INFECTION
     Dosage: 1 DF = 1 TABLET
  4. ABACAVIR [Suspect]
     Indication: HIV INFECTION
     Dosage: 2 DF = TWO TABLETS
  5. FLUOXETINE HCL [Concomitant]
  6. RISPERIDONE [Concomitant]
  7. LORAZEPAM [Concomitant]
  8. ENALAPRIL MALEATE [Concomitant]
  9. FUROSEMIDE [Concomitant]
  10. SPIRONOLACTONE [Concomitant]

REACTIONS (2)
  - ANAEMIA [None]
  - CARDIAC FAILURE [None]
